FAERS Safety Report 6879449-3 (Version None)
Quarter: 2010Q3

REPORT INFORMATION
  Report Type: 
  Country: None (occurrence: None)
  Receive Date: 20100728
  Receipt Date: 20100723
  Transmission Date: 20110219
  Serious: Yes (Death, Hospitalization, Other)
  Sender: FDA-Public Use
  Company Number: PHHY2010JP39776

PATIENT
  Age: 71 Year
  Sex: Female

DRUGS (6)
  1. NEORAL [Suspect]
     Indication: VASCULITIS
     Route: 048
  2. NEORAL [Suspect]
     Dosage: 200 MG DAILY
     Route: 048
     Dates: start: 20090607, end: 20090609
  3. NEORAL [Suspect]
     Route: 048
  4. PREDONINE [Suspect]
     Indication: VASCULITIS
     Dosage: UNK
  5. PREDONINE [Suspect]
     Dosage: 10 MG DAILY
     Route: 048
     Dates: start: 20090401
  6. ACYCLOVIR [Concomitant]

REACTIONS (11)
  - GENERAL PHYSICAL HEALTH DETERIORATION [None]
  - GLOMERULONEPHRITIS RAPIDLY PROGRESSIVE [None]
  - HERPES ZOSTER [None]
  - MENINGITIS CRYPTOCOCCAL [None]
  - MENINGITIS HERPES [None]
  - MENINGITIS VIRAL [None]
  - SEGMENTED HYALINISING VASCULITIS [None]
  - ULCER [None]
  - URINARY TRACT INFECTION [None]
  - VARICELLA VIRUS TEST POSITIVE [None]
  - VASCULITIS [None]
